FAERS Safety Report 13077617 (Version 1)
Quarter: 2016Q4

REPORT INFORMATION
  Report Type: Spontaneous
  Country: FR (occurrence: FR)
  Receive Date: 20161231
  Receipt Date: 20161231
  Transmission Date: 20170207
  Serious: Yes (Hospitalization, Other)
  Sender: FDA-Public Use
  Company Number: FR-009507513-1609FRA011760

PATIENT
  Age: 67 Year
  Sex: Male
  Weight: 113 kg

DRUGS (2)
  1. OMEPRAZOLE. [Concomitant]
     Active Substance: OMEPRAZOLE
  2. KEYTRUDA [Suspect]
     Active Substance: PEMBROLIZUMAB
     Indication: METASTATIC MALIGNANT MELANOMA
     Dosage: UNK (ROUTE: INFUSION)
     Route: 042
     Dates: start: 20151201, end: 20160711

REACTIONS (1)
  - Nephritis allergic [Unknown]

NARRATIVE: CASE EVENT DATE: 20160711
